FAERS Safety Report 8942469 (Version 1)
Quarter: 2012Q4

REPORT INFORMATION
  Report Type: 
  Country: NL (occurrence: NL)
  Receive Date: 20121204
  Receipt Date: 20121204
  Transmission Date: 20130627
  Serious: Yes (Death, Hospitalization)
  Sender: FDA-Public Use
  Company Number: NL-MYLANLABS-2012S1024405

PATIENT
  Age: 75 Year
  Sex: Female

DRUGS (6)
  1. PREDNISONE [Suspect]
     Indication: AUTOIMMUNE HEPATITIS
     Route: 065
  2. PAMIDRONIC ACID [Suspect]
     Indication: OSTEOPOROSIS
     Route: 042
  3. ZOLEDRONIC ACID [Suspect]
     Indication: OSTEOPOROSIS
     Route: 041
  4. AZATHIOPRINE [Suspect]
     Indication: AUTOIMMUNE HEPATITIS
     Route: 065
  5. VITAMIN D [Concomitant]
     Indication: OSTEOPOROSIS
     Route: 065
  6. CALCIUM [Concomitant]
     Indication: OSTEOPOROSIS
     Route: 065

REACTIONS (3)
  - Candida pneumonia [Fatal]
  - Osteonecrosis of jaw [Unknown]
  - Pseudomonas infection [Unknown]
